FAERS Safety Report 9587767 (Version 1)
Quarter: 2013Q4

REPORT INFORMATION
  Report Type: Spontaneous
  Country: JP (occurrence: JP)
  Receive Date: 20131003
  Receipt Date: 20131003
  Transmission Date: 20140711
  Serious: Yes (Hospitalization, Other)
  Sender: FDA-Public Use
  Company Number: JP-WATSON-2013-17198

PATIENT
  Age: 42 Year
  Sex: Female

DRUGS (3)
  1. PREDNISOLONE (UNKNOWN) [Suspect]
     Indication: RENAL TRANSPLANT
     Dosage: UNK
     Route: 065
     Dates: start: 1994, end: 2007
  2. AZATHIOPRINE (UNKNOWN) [Suspect]
     Indication: RENAL TRANSPLANT
     Dosage: 75 MG, DAILY
     Route: 065
     Dates: start: 1994
  3. CYCLOSPORINE (UNKNOWN) [Suspect]
     Indication: RENAL TRANSPLANT
     Dosage: 100 MG, DAILY
     Route: 065

REACTIONS (1)
  - Asthma [Recovered/Resolved]
